FAERS Safety Report 7528785-6 (Version None)
Quarter: 2011Q2

REPORT INFORMATION
  Report Type: 
  Country: None (occurrence: None)
  Receive Date: 20110607
  Receipt Date: 20110204
  Transmission Date: 20111010
  Serious: No
  Sender: FDA-Public Use
  Company Number: US-ASTRAZENECA-2011SE08751

PATIENT
  Sex: Female

DRUGS (3)
  1. PRILOSEC OTC [Suspect]
     Route: 048
     Dates: start: 20110103, end: 20110103
  2. ANTIHYPERTENSIVES [Concomitant]
  3. TENORMIN [Concomitant]

REACTIONS (6)
  - DYSPHAGIA [None]
  - PHARYNGEAL OEDEMA [None]
  - NASAL DISCOMFORT [None]
  - DRUG HYPERSENSITIVITY [None]
  - DIZZINESS [None]
  - OROPHARYNGEAL PAIN [None]
